FAERS Safety Report 8493035-3 (Version None)
Quarter: 2012Q2

REPORT INFORMATION
  Report Type: 
  Country: None (occurrence: None)
  Receive Date: 20120627
  Receipt Date: 20120520
  Transmission Date: 20120825
  Serious: Yes (Hospitalization)
  Sender: FDA-Public Use
  Company Number: DSA_58030_2012

PATIENT
  Sex: Male

DRUGS (1)
  1. XENAZINE [Suspect]
     Indication: HUNTINGTON'S DISEASE
     Dosage: (12.5 MG, QD/BID (AS REPORTED) ORAL)
     Route: 048
     Dates: start: 20111101

REACTIONS (2)
  - LIMB CRUSHING INJURY [None]
  - FALL [None]
